FAERS Safety Report 9836993 (Version 1)
Quarter: 2014Q1

REPORT INFORMATION
  Report Type: Spontaneous
  Country: US (occurrence: US)
  Receive Date: 20140123
  Receipt Date: 20140123
  Transmission Date: 20141002
  Serious: Yes (Hospitalization)
  Sender: FDA-Public Use
  Company Number: US-PFIZER INC-2014018432

PATIENT
  Age: 53 Year
  Sex: Female

DRUGS (23)
  1. CELEBREX [Suspect]
     Dosage: 200 MG, 1X/DAY (AT BED TIME)
  2. SPIRIVA [Suspect]
     Dosage: UNK(1 PUFF) , DAILY
  3. VALIUM [Concomitant]
     Dosage: 5 MG, DAILY
  4. TRAMADOL [Concomitant]
     Dosage: 50 MG, 3X/DAY
  5. BACLOFEN [Concomitant]
     Dosage: 10 MG, 1X/DAY(AT BED TIME)
  6. LEVOTHROID [Concomitant]
     Dosage: 88 MG, DAILY
  7. CHOLECALCIFEROL [Concomitant]
     Dosage: 1000 IU, DAILY
  8. LASIX [Concomitant]
     Dosage: 40 MG, DAILY
  9. ZOCOR [Concomitant]
     Dosage: 20 MG, 1X/DAY(AT BED TIME)
  10. ASPIRIN [Concomitant]
     Dosage: 81 MG, DAILY
  11. PRIMIDONE [Concomitant]
     Dosage: ? TAB DAY, 1 TAB AT BED TIME (250 MG DOSAGE)
  12. ADVAIR DISKUS [Concomitant]
     Dosage: UNK (1 PUFF), AT BED TIME
  13. HYDROCODONE [Concomitant]
     Dosage: 7.5/325 MG, 4X/DAY
  14. PROZAC [Concomitant]
     Dosage: 20 MG (3 TABLETS), DAILY
  15. TRAZODONE [Concomitant]
     Dosage: 50 MG, 1X/DAY(AT BED TIME)
  16. MECLIZINE [Concomitant]
     Dosage: 25 MG, DAILY
  17. PANTOPRAZOLE [Concomitant]
     Dosage: 40 MG, DAILY
  18. METOCLOPRAMIDE [Concomitant]
     Dosage: 10 MG, DAILY
  19. METFORMIN [Concomitant]
     Dosage: 850 MG, DAILY
  20. GABAPENTIN [Concomitant]
     Dosage: 600 MG, 2X/DAY
  21. INSULIN [Concomitant]
     Dosage: UNK (LOW DOSE), 2X/DAY
     Route: 058
  22. COLACE [Concomitant]
     Dosage: 100 MG, 2X/DAY
  23. VITAMIN D3-OSCAL-D [Concomitant]
     Dosage: 1 TABLET, 2X/DAY

REACTIONS (1)
  - Depression [Unknown]
